FAERS Safety Report 5089728-0 (Version None)
Quarter: 2006Q3

REPORT INFORMATION
  Report Type: 
  Country: None (occurrence: None)
  Receive Date: 20060731
  Receipt Date: 20060510
  Transmission Date: 20061208
  Serious: Yes (Hospitalization)
  Sender: FDA-Public Use
  Company Number: US200605002200

PATIENT
  Age: 81 Year
  Sex: Male

DRUGS (3)
  1. FORTEO [Suspect]
     Indication: OSTEOPOROSIS
     Dates: start: 20060401, end: 20060502
  2. FORTEO PEN (250MCG/ML) (FORTEO 250MCG/ML (3ML)) PEN,DISPOSABLE [Concomitant]
  3. IBUPROFEN [Concomitant]

REACTIONS (5)
  - ABDOMINAL DISTENSION [None]
  - BLOOD POTASSIUM INCREASED [None]
  - DYSPNOEA [None]
  - FLUID RETENTION [None]
  - SECRETION DISCHARGE [None]
